FAERS Safety Report 9773285 (Version 4)
Quarter: 2014Q2

REPORT INFORMATION
  Report Type: Spontaneous
  Country: JP (occurrence: JP)
  Receive Date: 20131219
  Receipt Date: 20140605
  Transmission Date: 20141212
  Serious: No
  Sender: FDA-Public Use
  Company Number: JP-GLAXOSMITHKLINE-B0954355A

PATIENT
  Age: 31 Year
  Sex: Female

DRUGS (7)
  1. LAMICTAL [Suspect]
     Indication: BIPOLAR DISORDER
     Dosage: 25MG ALTERNATE DAYS
     Route: 048
     Dates: start: 20130930, end: 20131011
  2. SODIUM VALPROATE [Suspect]
     Indication: EPILEPSY
     Route: 048
  3. JZOLOFT [Concomitant]
     Route: 048
     Dates: start: 20101214
  4. SULPIRIDE [Concomitant]
     Route: 048
     Dates: start: 20121119
  5. CALMDOWN [Concomitant]
     Route: 048
     Dates: start: 20110909
  6. ZOPICLONE [Concomitant]
     Route: 048
     Dates: start: 20130826
  7. NITRAZEPAM [Concomitant]
     Route: 048
     Dates: start: 20130805

REACTIONS (6)
  - Rash generalised [Recovered/Resolved]
  - Pyrexia [Recovered/Resolved]
  - Drug eruption [Recovered/Resolved]
  - Asthenia [Unknown]
  - Malaise [Unknown]
  - Gait disturbance [Unknown]
